FAERS Safety Report 4527738-X (Version None)
Quarter: 2004Q4

REPORT INFORMATION
  Report Type: 
  Country: None (occurrence: None)
  Receive Date: 20041215
  Receipt Date: 20041206
  Transmission Date: 20050328
  Serious: Yes (Death)
  Sender: FDA-Public Use
  Company Number: FR-ROCHE-388401

PATIENT
  Age: 72 Year
  Sex: Male

DRUGS (6)
  1. ROCEPHIN [Suspect]
     Indication: DRUG USE FOR UNKNOWN INDICATION
     Dosage: FORMULATION REPORTED AS INJECTABLE SOLUTION.
     Route: 030
     Dates: end: 20040905
  2. ZYLORIC [Suspect]
     Indication: DRUG USE FOR UNKNOWN INDICATION
     Route: 048
     Dates: start: 20040615, end: 20040906
  3. CLAMOXYL [Suspect]
     Indication: PHARYNGITIS
     Route: 048
     Dates: start: 20040827, end: 20040901
  4. SECTRAL [Concomitant]
     Route: 048
  5. COTAREG [Concomitant]
  6. VASTEN [Concomitant]

REACTIONS (6)
  - HYPERSENSITIVITY [None]
  - NEPHRITIS [None]
  - OEDEMA PERIPHERAL [None]
  - PNEUMONITIS [None]
  - STEVENS-JOHNSON SYNDROME [None]
  - TOXIC SKIN ERUPTION [None]
